FAERS Safety Report 6931035-2 (Version None)
Quarter: 2010Q3

REPORT INFORMATION
  Report Type: 
  Country: None (occurrence: None)
  Receive Date: 20100818
  Receipt Date: 20100804
  Transmission Date: 20110219
  Serious: Yes (Hospitalization)
  Sender: FDA-Public Use
  Company Number: BE-ABBOTT-09P-013-0612954-04

PATIENT
  Sex: Female
  Weight: 59 kg

DRUGS (8)
  1. HUMIRA [Suspect]
     Indication: CROHN'S DISEASE
     Route: 058
     Dates: start: 20080619, end: 20091001
  2. PURINETHOL [Concomitant]
     Indication: CROHN'S DISEASE
     Dates: start: 20090403
  3. NEUROBION [Concomitant]
     Indication: CROHN'S DISEASE
     Dosage: 201MG/3ML
     Route: 030
     Dates: start: 20090405
  4. NEUROBION [Concomitant]
     Indication: VITAMIN B12 DEFICIENCY
  5. CALCIUM WITH VITAMIN D [Concomitant]
     Indication: PROPHYLAXIS
     Dosage: 880/1000MG
     Dates: start: 20000303
  6. CALCIUM WITH VITAMIN D [Concomitant]
     Indication: OSTEOPOROSIS
  7. CALCIUM WITH VITAMIN D [Concomitant]
     Indication: STEROID THERAPY
  8. MEDROL [Concomitant]
     Indication: CROHN'S DISEASE
     Dates: start: 20090429

REACTIONS (1)
  - CROHN'S DISEASE [None]
